FAERS Safety Report 6717026-5 (Version None)
Quarter: 2010Q2

REPORT INFORMATION
  Report Type: 
  Country: None (occurrence: None)
  Receive Date: 20100506
  Receipt Date: 20100506
  Transmission Date: 20101027
  Serious: Yes (Life-Threatening)
  Sender: FDA-Public Use
  Company Number: None

PATIENT
  Age: 59 Year
  Sex: Female
  Weight: 63.5036 kg

DRUGS (1)
  1. TACROLIMUS [Suspect]
     Indication: ISCHAEMIA
     Dosage: 4 CAP 1 MG AM 4 CAP 1 PM MG
     Dates: start: 20091125, end: 20091202

REACTIONS (5)
  - ARTHRALGIA [None]
  - BACK PAIN [None]
  - CONSTIPATION [None]
  - DECREASED APPETITE [None]
  - HYPOAESTHESIA [None]
